FAERS Safety Report 9257151 (Version 1)
Quarter: 2013Q1

REPORT INFORMATION
  Report Type: Spontaneous
  Country: US (occurrence: None)
  Receive Date: 20121212
  Receipt Date: 20121212
  Transmission Date: 20140127
  Serious: Yes (Other)
  Sender: FDA-Public Use
  Company Number: 1210USA012161

PATIENT
  Age: 52 Year
  Sex: Male

DRUGS (3)
  1. PEGINTRON [Suspect]
     Indication: HEPATITIS C
     Dosage: UNK
     Dates: start: 20120415
  2. VICTRELIS [Suspect]
     Indication: HEPATITIS C
     Dosage: UNK
     Dates: start: 20120508, end: 20120731
  3. RIBAVIRIN (RIBAVIRIN) CAPSULE [Suspect]
     Indication: HEPATITIS C
     Dosage: 6 DF, UNK
     Dates: start: 20120415, end: 2012

REACTIONS (10)
  - Haemoglobin decreased [None]
  - Anxiety [None]
  - Gastrooesophageal reflux disease [None]
  - Pallor [None]
  - Rash [None]
  - Erythema [None]
  - Insomnia [None]
  - Dry mouth [None]
  - Dysgeusia [None]
  - Injection site rash [None]
